FAERS Safety Report 24830547 (Version 2)
Quarter: 2025Q1

REPORT INFORMATION
  Report Type: Spontaneous
  Country: FR (occurrence: FR)
  Receive Date: 20250110
  Receipt Date: 20250118
  Transmission Date: 20250408
  Serious: Yes (Other)
  Sender: CSL BEHRING
  Company Number: FR-BEH-2025191303

PATIENT
  Age: 79 Year
  Sex: Female
  Weight: 81 kg

DRUGS (4)
  1. PRIVIGEN [Suspect]
     Active Substance: HUMAN IMMUNOGLOBULIN G
     Indication: Chronic inflammatory demyelinating polyradiculoneuropathy
     Route: 042
     Dates: start: 20241230
  2. PRIVIGEN [Suspect]
     Active Substance: HUMAN IMMUNOGLOBULIN G
     Route: 042
     Dates: start: 20241231
  3. PRIVIGEN [Suspect]
     Active Substance: HUMAN IMMUNOGLOBULIN G
     Route: 042
     Dates: start: 20250101
  4. PRIVIGEN [Suspect]
     Active Substance: HUMAN IMMUNOGLOBULIN G
     Route: 042
     Dates: start: 20250102

REACTIONS (15)
  - Septic shock [Unknown]
  - Hyperthermia [Unknown]
  - Chills [Unknown]
  - Livedo reticularis [Unknown]
  - Peripheral coldness [Unknown]
  - Nausea [Unknown]
  - Vomiting [Unknown]
  - Musculoskeletal pain [Recovering/Resolving]
  - Headache [Recovered/Resolved]
  - Phonophobia [Unknown]
  - Photophobia [Unknown]
  - Abdominal pain upper [Unknown]
  - Vomiting [Unknown]
  - Haematuria [Unknown]
  - Klebsiella test positive [Unknown]

NARRATIVE: CASE EVENT DATE: 20250102
